FAERS Safety Report 5708093-6 (Version None)
Quarter: 2008Q2

REPORT INFORMATION
  Report Type: 
  Country: None (occurrence: None)
  Receive Date: 20080417
  Receipt Date: 20080415
  Transmission Date: 20081010
  Serious: Yes (Other)
  Sender: FDA-Public Use
  Company Number: A0722837A

PATIENT
  Age: 50 Year
  Sex: Female
  Weight: 76.4 kg

DRUGS (1)
  1. ALLI [Suspect]
     Indication: WEIGHT LOSS DIET
     Dosage: 2CAP PER DAY
     Route: 048
     Dates: start: 20080101

REACTIONS (2)
  - DIARRHOEA [None]
  - HEPATIC ENZYME INCREASED [None]
